FAERS Safety Report 4821799-6 (Version None)
Quarter: 2005Q4

REPORT INFORMATION
  Report Type: 
  Country: None (occurrence: None)
  Receive Date: 20051107
  Receipt Date: 20050207
  Transmission Date: 20060501
  Serious: Yes (Other)
  Sender: FDA-Public Use
  Company Number: PHEH2005US01780

PATIENT
  Age: 58 Year
  Sex: Male

DRUGS (10)
  1. DOXORUBICIN [Concomitant]
  2. DEXAMETHASONE [Concomitant]
  3. THIOTEPA [Concomitant]
  4. MELPHALAN [Concomitant]
  5. BUSULPHAN [Concomitant]
  6. GENASENSE [Concomitant]
  7. GM-CSF [Concomitant]
  8. ZOLEDRONIC ACID [Suspect]
     Indication: METASTASES TO BONE
  9. VINCRISTINE [Concomitant]
  10. AREDIA [Suspect]
     Indication: METASTASES TO BONE
     Route: 042

REACTIONS (3)
  - INFECTION [None]
  - OSTEONECROSIS [None]
  - TOOTH EXTRACTION [None]
